FAERS Safety Report 24311947 (Version 1)
Quarter: 2024Q3

REPORT INFORMATION
  Report Type: Spontaneous
  Country: US (occurrence: US)
  Receive Date: 20240912
  Receipt Date: 20240912
  Transmission Date: 20241017
  Serious: No
  Sender: Harrow Health
  Company Number: US-IMP-2024000691

PATIENT
  Sex: Female

DRUGS (3)
  1. VEVYE [Suspect]
     Active Substance: CYCLOSPORINE
     Indication: Product used for unknown indication
     Route: 047
     Dates: start: 2024, end: 20240825
  2. NASONEX  nasal spray [Concomitant]
     Indication: Product used for unknown indication
  3. Hyaluronic eye drops [Concomitant]
     Indication: Product used for unknown indication
     Dosage: DURING THE DAY

REACTIONS (4)
  - Dry eye [Unknown]
  - Eye irritation [Unknown]
  - Vision blurred [Unknown]
  - Visual impairment [Unknown]

NARRATIVE: CASE EVENT DATE: 20240101
